FAERS Safety Report 7643945-1 (Version None)
Quarter: 2011Q3

REPORT INFORMATION
  Report Type: 
  Country: None (occurrence: None)
  Receive Date: 20110729
  Receipt Date: 20101116
  Transmission Date: 20111222
  Serious: No
  Sender: FDA-Public Use
  Company Number: US-GLAXOSMITHKLINE-A0892838A

PATIENT
  Age: 60 Year
  Sex: Male

DRUGS (3)
  1. DYAZIDE [Suspect]
     Route: 048
  2. DYAZIDE [Suspect]
     Indication: PRODUCT USED FOR UNKNOWN INDICATION
     Dosage: 1CAP PER DAY
     Route: 048
  3. LOSARTAN POTASSIUM [Concomitant]

REACTIONS (1)
  - LIBIDO DECREASED [None]
